FAERS Safety Report 19136070 (Version 2)
Quarter: 2021Q2

REPORT INFORMATION
  Report Type: Report from Study
  Country: CA (occurrence: CA)
  Receive Date: 20210414
  Receipt Date: 20210603
  Transmission Date: 20210717
  Serious: No
  Sender: FDA-Public Use
  Company Number: CA-BAUSCH-BL-2021-012374

PATIENT
  Age: 57 Year
  Sex: Female
  Weight: 58.11 kg

DRUGS (5)
  1. SILIQ [Suspect]
     Active Substance: BRODALUMAB
     Indication: PSORIASIS
     Dosage: 210 MG/1.5 ML
     Route: 058
     Dates: start: 20200731, end: 202008
  2. SERC [Concomitant]
     Indication: DIZZINESS
     Dosage: HAS BEEN TAKING IT FOR 5 YEARS
     Dates: start: 2016
  3. SILIQ [Suspect]
     Active Substance: BRODALUMAB
     Dosage: 210 MG/1.5 ML
     Route: 058
     Dates: end: 20210224
  4. MICARDIS [Concomitant]
     Active Substance: TELMISARTAN
     Indication: HYPERTENSION
  5. SILIQ [Suspect]
     Active Substance: BRODALUMAB
     Dosage: 210 MG/1.5 ML
     Route: 058
     Dates: start: 2021

REACTIONS (3)
  - Abdominal pain [Not Recovered/Not Resolved]
  - Psoriasis [Recovering/Resolving]
  - Pyrexia [Recovered/Resolved]

NARRATIVE: CASE EVENT DATE: 2021
